FAERS Safety Report 10367269 (Version 3)
Quarter: 2015Q2

REPORT INFORMATION
  Report Type: Spontaneous
  Country: AR (occurrence: AR)
  Receive Date: 20140807
  Receipt Date: 20150415
  Transmission Date: 20150821
  Serious: Yes (Hospitalization, Other)
  Sender: FDA-Public Use
  Company Number: AR-AMGEN-ARGSP2014059846

PATIENT
  Age: 65 Year
  Sex: Female

DRUGS (13)
  1. ISLOTIN [Concomitant]
     Dosage: UNK
     Dates: start: 2004
  2. ACIFOL                             /00024201/ [Concomitant]
     Dosage: 10 UNK, UNK
     Dates: start: 2000
  3. ENBREL [Suspect]
     Active Substance: ETANERCEPT
     Indication: RHEUMATOID ARTHRITIS
     Dosage: 50 MG, WEEKLY
     Route: 065
     Dates: start: 1998
  4. METHOTREXATE SODIUM. [Suspect]
     Active Substance: METHOTREXATE SODIUM
     Indication: PRODUCT USED FOR UNKNOWN INDICATION
     Dosage: 75 MG, UNK
     Route: 065
     Dates: start: 1998
  5. ATLANSIL                           /00133101/ [Concomitant]
     Dosage: UNK
  6. NEXIUM [Concomitant]
     Active Substance: ESOMEPRAZOLE MAGNESIUM
     Dosage: 40 MG
     Dates: start: 2009
  7. AMPLIAR [Concomitant]
     Dosage: 10 (UNK UNITS)
     Dates: start: 2015
  8. PARACETAMOL [Concomitant]
     Active Substance: ACETAMINOPHEN
     Dosage: 10 MG, DAILY
     Dates: start: 2010
  9. NIMO [Concomitant]
     Dosage: UNK
  10. ERYTHROPOIETIN [Concomitant]
     Active Substance: ERYTHROPOIETIN
     Dosage: UNK
  11. MIOPROPAN [Concomitant]
     Dosage: 5 UNK, UNK
     Dates: start: 1985
  12. NEUR-AMYL [Concomitant]
     Dosage: 2 MG, UNK
     Dates: start: 2010
  13. NABILA [Concomitant]
     Dosage: 10 MG
     Dates: start: 2015

REACTIONS (7)
  - Diabetes mellitus [Not Recovered/Not Resolved]
  - Palpitations [Not Recovered/Not Resolved]
  - Arrhythmia [Not Recovered/Not Resolved]
  - Abdominal discomfort [Not Recovered/Not Resolved]
  - Angina pectoris [Not Recovered/Not Resolved]
  - Respiratory failure [Not Recovered/Not Resolved]
  - Cardiac failure [Not Recovered/Not Resolved]

NARRATIVE: CASE EVENT DATE: 2004
